FAERS Safety Report 11611182 (Version 1)
Quarter: 2015Q4

REPORT INFORMATION
  Report Type: Spontaneous
  Country: US (occurrence: US)
  Receive Date: 20151008
  Receipt Date: 20151008
  Transmission Date: 20160304
  Serious: No
  Sender: FDA-Public Use
  Company Number: US-BAYER-2015-439347

PATIENT
  Age: 82 Year
  Sex: Female
  Weight: 81.63 kg

DRUGS (2)
  1. CELEBREX [Concomitant]
     Active Substance: CELECOXIB
     Dosage: UNK
  2. OXYTROL FOR WOMEN [Suspect]
     Active Substance: OXYBUTYNIN
     Dosage: 1 DF, UNK
     Route: 061
     Dates: start: 201505

REACTIONS (2)
  - Product use issue [None]
  - Drug ineffective [None]

NARRATIVE: CASE EVENT DATE: 2015
